FAERS Safety Report 4548168-0 (Version None)
Quarter: 2005Q1

REPORT INFORMATION
  Report Type: 
  Country: None (occurrence: None)
  Receive Date: 20050104
  Receipt Date: 20050104
  Transmission Date: 20050727
  Serious: Yes (Hospitalization)
  Sender: FDA-Public Use
  Company Number: None

PATIENT
  Age: 55 Year
  Sex: Female
  Weight: 55.7924 kg

DRUGS (5)
  1. CETUXIMAB 250 MG/M2 [Suspect]
     Indication: CHEMOTHERAPY
     Dosage: 250 MG X1 INTRAVENOUS
     Route: 042
     Dates: start: 20041221, end: 20041221
  2. CETUXIMAB 250 MG/M2 [Suspect]
     Indication: OESOPHAGEAL CARCINOMA
     Dosage: 250 MG X1 INTRAVENOUS
     Route: 042
     Dates: start: 20041221, end: 20041221
  3. TAXOL [Suspect]
     Indication: CHEMOTHERAPY
     Dosage: 75 MG X1 INTRAVENOUS
     Route: 042
     Dates: start: 20041221, end: 20041221
  4. TAXOL [Suspect]
     Indication: OESOPHAGEAL CARCINOMA
     Dosage: 75 MG X1 INTRAVENOUS
     Route: 042
     Dates: start: 20041221, end: 20041221
  5. PROTONIX [Concomitant]

REACTIONS (2)
  - CHEST DISCOMFORT [None]
  - CHEST PAIN [None]
